FAERS Safety Report 24580323 (Version 1)
Quarter: 2024Q4

REPORT INFORMATION
  Report Type: Spontaneous
  Country: RS (occurrence: RS)
  Receive Date: 20241105
  Receipt Date: 20241105
  Transmission Date: 20250115
  Serious: Yes (Other)
  Sender: BOEHRINGER INGELHEIM
  Company Number: RS-BoehringerIngelheim-2024-BI-059433

PATIENT
  Age: 69 Year
  Sex: Female

DRUGS (2)
  1. OFEV [Suspect]
     Active Substance: NINTEDANIB
     Indication: Dermatomyositis
     Dates: start: 202208
  2. MYCOPHENOLATE MOFETIL [Concomitant]
     Active Substance: MYCOPHENOLATE MOFETIL

REACTIONS (11)
  - Colon cancer [Unknown]
  - Dermatomyositis [Unknown]
  - COVID-19 [Unknown]
  - Arthritis [Unknown]
  - Rash [Unknown]
  - Condition aggravated [Unknown]
  - Acarodermatitis [Unknown]
  - Forced vital capacity abnormal [Unknown]
  - Forced expiratory volume abnormal [Unknown]
  - Lung diffusion test abnormal [Unknown]
  - Blood carbon monoxide decreased [Unknown]

NARRATIVE: CASE EVENT DATE: 20221001
